FAERS Safety Report 4721375-X (Version None)
Quarter: 2005Q3

REPORT INFORMATION
  Report Type: 
  Country: None (occurrence: None)
  Receive Date: 20050721
  Receipt Date: 20040725
  Transmission Date: 20060218
  Serious: No
  Sender: FDA-Public Use
  Company Number: US-BRISTOL-MYERS SQUIBB COMPANY-12651758

PATIENT
  Age: 84 Year
  Sex: Female

DRUGS (4)
  1. COUMADIN [Suspect]
     Dosage: ON THERAPY FOR MANY YEARS; RECENTLY ON 4MG
  2. DICLOXACILLIN SODIUM [Suspect]
     Dates: start: 20040716, end: 20040723
  3. VANCOMYCIN [Concomitant]
     Dosage: PREVIOUSLY ON IV VANCOMYCIN
     Route: 042
  4. OTHERS (NOS) [Concomitant]

REACTIONS (2)
  - DRUG INEFFECTIVE [None]
  - INTERNATIONAL NORMALISED RATIO DECREASED [None]
